FAERS Safety Report 5368281-8 (Version None)
Quarter: 2007Q2

REPORT INFORMATION
  Report Type: 
  Country: None (occurrence: None)
  Receive Date: 20070619
  Receipt Date: 20070605
  Transmission Date: 20071010
  Serious: Yes (Other)
  Sender: FDA-Public Use
  Company Number: 100#03#2007-02100

PATIENT
  Age: 76 Year
  Sex: Female

DRUGS (4)
  1. CEFALEXIN (CEFALEXIN) (CEFALEXIN) [Suspect]
     Indication: DRUG USE FOR UNKNOWN INDICATION
  2. TRIMETHOPRIM [Suspect]
     Indication: DRUG USE FOR UNKNOWN INDICATION
     Dosage: 0.5 DF (2 DAILY), ORAL
     Route: 048
     Dates: start: 20070510, end: 20070511
  3. IMURAN [Concomitant]
  4. NEORAL(CICLOSPORIN) (CICLOSPORIN, CICLOSPORIN A, CYCLOSPORIN, CYCLOSPO [Concomitant]

REACTIONS (1)
  - DRUG INTERACTION [None]
